FAERS Safety Report 16296362 (Version 1)
Quarter: 2019Q2

REPORT INFORMATION
  Report Type: Spontaneous
  Country: US (occurrence: US)
  Receive Date: 20190510
  Receipt Date: 20190510
  Transmission Date: 20190711
  Serious: No
  Sender: FDA-Public Use
  Company Number: US-ASTRAZENECA-2019SE68637

PATIENT
  Sex: Male
  Weight: 103.4 kg

DRUGS (9)
  1. AMITRIPTYLINE [Suspect]
     Active Substance: AMITRIPTYLINE
     Route: 065
  2. ROSUVASTATIN. [Suspect]
     Active Substance: ROSUVASTATIN
     Route: 048
  3. ASPIRIN. [Concomitant]
     Active Substance: ASPIRIN
  4. SEROQUEL XR [Suspect]
     Active Substance: QUETIAPINE FUMARATE
     Dosage: GENERIC
     Route: 048
  5. BUSPIRONE [Concomitant]
     Active Substance: BUSPIRONE HYDROCHLORIDE
  6. SEROQUEL XR [Suspect]
     Active Substance: QUETIAPINE FUMARATE
     Dosage: (SEROQUEL)
     Route: 048
  7. GABAPENTIN. [Concomitant]
     Active Substance: GABAPENTIN
  8. SEROQUEL XR [Suspect]
     Active Substance: QUETIAPINE FUMARATE
     Dosage: (SEROQUEL XR)
     Route: 048
  9. RABEPRAZOLE [Concomitant]
     Active Substance: RABEPRAZOLE

REACTIONS (3)
  - Intentional product misuse [Unknown]
  - Multiple sclerosis relapse [Unknown]
  - Feeling abnormal [Not Recovered/Not Resolved]
